FAERS Safety Report 19066182 (Version 1)
Quarter: 2021Q1

REPORT INFORMATION
  Report Type: Spontaneous
  Country: DE (occurrence: DE)
  Receive Date: 20210327
  Receipt Date: 20210327
  Transmission Date: 20210420
  Serious: Yes (Other)
  Sender: FDA-Public Use
  Company Number: DE-SEPTODONT-2021006202

PATIENT
  Age: 35 Year
  Sex: Female

DRUGS (1)
  1. SEPTANEST 1/200 000 [Suspect]
     Active Substance: ARTICAINE HYDROCHLORIDE\EPINEPHRINE BITARTRATE
     Dosage: INFLAMMATORY INJECTION SITE??DENTAL NEEDLE: STERICAN
     Route: 004
     Dates: start: 20210323

REACTIONS (4)
  - Swelling [Recovering/Resolving]
  - Chills [Recovering/Resolving]
  - Oral pain [Unknown]
  - Swelling face [Recovering/Resolving]

NARRATIVE: CASE EVENT DATE: 20210323
